FAERS Safety Report 10239194 (Version 1)
Quarter: 2014Q2

REPORT INFORMATION
  Report Type: Spontaneous
  Country: US (occurrence: US)
  Receive Date: 20140616
  Receipt Date: 20140616
  Transmission Date: 20141212
  Serious: Yes (Other)
  Sender: FDA-Public Use
  Company Number: US-GLAXOSMITHKLINE-A1077146A

PATIENT
  Age: 50 Year
  Sex: Male

DRUGS (3)
  1. FLOLAN [Suspect]
     Indication: PULMONARY ARTERIAL HYPERTENSION
     Dosage: 32NGKM UNKNOWN
     Route: 065
     Dates: start: 20040423
  2. COUMADIN [Concomitant]
  3. REVATIO [Concomitant]

REACTIONS (1)
  - Cataract operation [Unknown]
